FAERS Safety Report 5563364-1 (Version None)
Quarter: 2007Q4

REPORT INFORMATION
  Report Type: 
  Country: None (occurrence: None)
  Receive Date: 20071217
  Receipt Date: 20070312
  Transmission Date: 20080405
  Serious: No
  Sender: FDA-Public Use
  Company Number: US-ASTRAZENECA-2007UW04681

PATIENT
  Age: 60 Year
  Sex: Female
  Weight: 59 kg

DRUGS (4)
  1. CRESTOR [Suspect]
     Indication: BLOOD CHOLESTEROL INCREASED
     Route: 048
     Dates: start: 20070101
  2. ACTONEL [Concomitant]
  3. CELEBREX [Concomitant]
  4. SECTRAL [Concomitant]

REACTIONS (2)
  - BLADDER DISCOMFORT [None]
  - URINE ABNORMALITY [None]
